FAERS Safety Report 17560025 (Version 1)
Quarter: 2020Q1

REPORT INFORMATION
  Report Type: Spontaneous
  Country: US (occurrence: US)
  Receive Date: 20200319
  Receipt Date: 20200319
  Transmission Date: 20200409
  Serious: Yes (Other)
  Sender: FDA-Public Use
  Company Number: US-ELI_LILLY_AND_COMPANY-US202003005912

PATIENT
  Age: 53 Year
  Sex: Female

DRUGS (1)
  1. HUMALOG [Suspect]
     Active Substance: INSULIN LISPRO
     Indication: DIABETES MELLITUS
     Dosage: UNK UNK, UNKNOWN
     Route: 058

REACTIONS (9)
  - Cough [Recovering/Resolving]
  - Schizoaffective disorder [Not Recovered/Not Resolved]
  - Painful respiration [Recovering/Resolving]
  - Abnormal dreams [Unknown]
  - Anxiety [Not Recovered/Not Resolved]
  - Costochondritis [Recovering/Resolving]
  - Tardive dyskinesia [Unknown]
  - Injection site pain [Unknown]
  - Chronic obstructive pulmonary disease [Not Recovered/Not Resolved]

NARRATIVE: CASE EVENT DATE: 20200307
